FAERS Safety Report 8176381-2 (Version None)
Quarter: 2012Q1

REPORT INFORMATION
  Report Type: 
  Country: None (occurrence: None)
  Receive Date: 20120227
  Receipt Date: 20120227
  Transmission Date: 20120608
  Serious: Yes (Other)
  Sender: FDA-Public Use
  Company Number: None

PATIENT
  Sex: Male
  Weight: 158.759 kg

DRUGS (2)
  1. RISPERIDONE [Suspect]
     Dosage: 4 MG 1 PO DLY
     Route: 048
     Dates: start: 20120117
  2. RISPERIDONE [Suspect]
     Dosage: 4 MG 1 PO DLY
     Route: 048
     Dates: start: 20120130

REACTIONS (4)
  - DEPRESSED MOOD [None]
  - PRODUCT SUBSTITUTION ISSUE [None]
  - WITHDRAWAL SYNDROME [None]
  - ANGER [None]
